FAERS Safety Report 4465096-X (Version None)
Quarter: 2004Q3

REPORT INFORMATION
  Report Type: 
  Country: None (occurrence: None)
  Receive Date: 20040928
  Receipt Date: 20040928
  Transmission Date: 20050211
  Serious: Yes (Hospitalization)
  Sender: FDA-Public Use
  Company Number: None

PATIENT
  Sex: Male

DRUGS (7)
  1. DEPAKOTE [Suspect]
     Indication: SCHIZOAFFECTIVE DISORDER
     Dosage: 250 MG/500 AM/PM ORAL
     Route: 048
  2. LAMICTAL [Suspect]
     Indication: SCHIZOAFFECTIVE DISORDER
     Dosage: 50 MG   BID  ORAL
     Route: 048
  3. LISINOPRIL [Concomitant]
  4. METOPROLOL [Concomitant]
  5. MULTI-VITAMIN [Concomitant]
  6. OLANZAPINE [Concomitant]
  7. QUETIAPINE [Concomitant]

REACTIONS (1)
  - DELIRIUM [None]
